FAERS Safety Report 25700879 (Version 1)
Quarter: 2025Q3

REPORT INFORMATION
  Report Type: Spontaneous
  Country: US (occurrence: US)
  Receive Date: 20250819
  Receipt Date: 20250819
  Transmission Date: 20251020
  Serious: No
  Sender: SANOFI AVENTIS
  Company Number: US-SANOFI-02623510

PATIENT
  Age: 63 Year
  Sex: Male

DRUGS (2)
  1. TOUJEO [Suspect]
     Active Substance: INSULIN GLARGINE
     Indication: Type 1 diabetes mellitus
     Dosage: 50 IU, BID
     Route: 065
     Dates: end: 20250813
  2. NOVOLIN N [Concomitant]
     Active Substance: INSULIN HUMAN

REACTIONS (2)
  - Blood glucose increased [Unknown]
  - Off label use [Unknown]
